FAERS Safety Report 10063314 (Version 2)
Quarter: 2014Q2

REPORT INFORMATION
  Report Type: Spontaneous
  Country: FR (occurrence: FR)
  Receive Date: 20140407
  Receipt Date: 20140625
  Transmission Date: 20141212
  Serious: Yes (Hospitalization, Other)
  Sender: FDA-Public Use
  Company Number: FR-PFIZER INC-2014091170

PATIENT
  Age: 81 Year
  Sex: Female

DRUGS (11)
  1. SALAZOPYRINE [Suspect]
     Indication: ANKYLOSING SPONDYLITIS
     Dosage: UNK
     Route: 048
     Dates: start: 20140204, end: 20140220
  2. BIPROFENID [Concomitant]
     Dosage: 1 DF, 2X/DAY
     Route: 048
     Dates: end: 20140220
  3. CIRKAN [Concomitant]
     Dosage: 2 DF, 1X/DAY
     Route: 054
     Dates: start: 201402, end: 201402
  4. TOPALGIC [Concomitant]
     Dosage: 1 DF (150MG), 2X/DAY
     Route: 048
  5. SEROPLEX [Concomitant]
     Dosage: 0.5 DF (10MG TAB), 1X/DAY
     Route: 048
  6. INDAPAMIDE/PERINDOPRIL [Concomitant]
     Dosage: UNK
     Route: 048
  7. LASILIX [Concomitant]
     Dosage: 1 DF (40MG), ALTERNATE DAY
     Route: 048
  8. INEXIUM [Concomitant]
     Dosage: 1 DF (20MG), 1X/DAY
     Route: 048
  9. DAFALGAN [Concomitant]
     Dosage: 2 DF (500MG CAPSULE), 3X/DAY
     Route: 048
  10. LEXOMIL [Concomitant]
     Dosage: 0.25 DF, 1X/DAY
     Route: 048
  11. CETORNAN [Concomitant]
     Dosage: 2 DF, 1X/DAY
     Route: 048
     Dates: start: 201402, end: 201402

REACTIONS (5)
  - Lung disorder [Recovered/Resolved]
  - Renal failure acute [Unknown]
  - Hepatocellular injury [Unknown]
  - Pneumonia [Unknown]
  - Inflammation [Recovering/Resolving]
